FAERS Safety Report 10440430 (Version 3)
Quarter: 2015Q4

REPORT INFORMATION
  Report Type: Report from Study
  Country: US (occurrence: US)
  Receive Date: 20140909
  Receipt Date: 20151028
  Transmission Date: 20160304
  Serious: Yes (Hospitalization, Other)
  Sender: FDA-Public Use
  Company Number: US-BIOGENIDEC-2014BI006657

PATIENT
  Age: 31 Year
  Sex: Female

DRUGS (2)
  1. TYSABRI [Suspect]
     Active Substance: NATALIZUMAB
     Indication: MULTIPLE SCLEROSIS
     Route: 042
     Dates: start: 20140919, end: 20150902
  2. TYSABRI [Suspect]
     Active Substance: NATALIZUMAB
     Indication: MULTIPLE SCLEROSIS
     Route: 042
     Dates: start: 20110728, end: 20140103

REACTIONS (5)
  - Pulmonary embolism [Recovered/Resolved]
  - Muscle spasms [Not Recovered/Not Resolved]
  - Caesarean section [Recovered/Resolved]
  - Weight increased [Unknown]
  - Sluggishness [Unknown]

NARRATIVE: CASE EVENT DATE: 2014
